FAERS Safety Report 15139703 (Version 3)
Quarter: 2018Q3

REPORT INFORMATION
  Report Type: Spontaneous
  Country: GB (occurrence: GB)
  Receive Date: 20180713
  Receipt Date: 20180720
  Transmission Date: 20181010
  Serious: Yes (Hospitalization, Other)
  Sender: FDA-Public Use
  Company Number: GB-MYLANLABS-2018M1052097

PATIENT
  Age: 43 Year
  Sex: Female
  Weight: 110 kg

DRUGS (8)
  1. VALPROATE [Concomitant]
     Active Substance: VALPROIC ACID
     Indication: SCHIZOAFFECTIVE DISORDER
     Dosage: 1200 MG, BID
     Route: 048
  2. METFORMIN [Concomitant]
     Active Substance: METFORMIN HYDROCHLORIDE
     Indication: PRODUCT USED FOR UNKNOWN INDICATION
     Dosage: 500 MG, TID
     Route: 048
  3. CLOZARIL [Suspect]
     Active Substance: CLOZAPINE
     Indication: SCHIZOPHRENIA
     Dosage: UNK
     Route: 048
     Dates: start: 20180710
  4. LISINOPRIL. [Concomitant]
     Active Substance: LISINOPRIL
     Indication: PRODUCT USED FOR UNKNOWN INDICATION
     Dosage: 10 MG, QD
     Route: 048
  5. AMISULPRIDE [Concomitant]
     Active Substance: AMISULPRIDE
     Indication: SCHIZOAFFECTIVE DISORDER
     Dosage: 550 MG, PM
     Route: 048
  6. OMEPRAZOLE. [Concomitant]
     Active Substance: OMEPRAZOLE
     Indication: PRODUCT USED FOR UNKNOWN INDICATION
     Dosage: 40 MG, QD
     Route: 048
  7. SIMVASTATIN. [Concomitant]
     Active Substance: SIMVASTATIN
     Indication: PRODUCT USED FOR UNKNOWN INDICATION
     Dosage: 40 MG, PM
     Route: 048
  8. CLOZARIL [Suspect]
     Active Substance: CLOZAPINE
     Indication: SCHIZOAFFECTIVE DISORDER
     Dosage: 500 MG, PM
     Route: 048
     Dates: start: 19990526

REACTIONS (15)
  - Lower respiratory tract infection [Recovering/Resolving]
  - Hallucination, auditory [Unknown]
  - Product use in unapproved indication [Unknown]
  - Delusion [Unknown]
  - Mania [Unknown]
  - C-reactive protein increased [Unknown]
  - Schizophrenia [Unknown]
  - Oedema peripheral [Not Recovered/Not Resolved]
  - Grandiosity [Unknown]
  - Sexually inappropriate behaviour [Unknown]
  - Alanine aminotransferase increased [Unknown]
  - Hypomania [Unknown]
  - Thinking abnormal [Unknown]
  - QRS axis abnormal [Unknown]
  - Sinus tachycardia [Not Recovered/Not Resolved]

NARRATIVE: CASE EVENT DATE: 2011
